FAERS Safety Report 5012185-7 (Version None)
Quarter: 2006Q2

REPORT INFORMATION
  Report Type: 
  Country: None (occurrence: None)
  Receive Date: 20060524
  Receipt Date: 20060426
  Transmission Date: 20061013
  Serious: Yes (Death, Hospitalization)
  Sender: FDA-Public Use
  Company Number: 2006058787

PATIENT
  Age: 44 Year
  Sex: Male
  Weight: 117.9352 kg

DRUGS (1)
  1. CELEBREX [Suspect]
     Indication: ARTHRALGIA
     Dosage: 100 MG
     Dates: start: 19990101

REACTIONS (1)
  - CARDIAC DISORDER [None]
